FAERS Safety Report 9729600 (Version 1)
Quarter: 2013Q4

REPORT INFORMATION
  Report Type: Report from Study
  Country: BE (occurrence: BE)
  Receive Date: 20131204
  Receipt Date: 20131204
  Transmission Date: 20140711
  Serious: Yes (Hospitalization)
  Sender: FDA-Public Use
  Company Number: BE-ABBVIE-13P-013-1174556-00

PATIENT
  Age: 74 Year
  Sex: Female
  Weight: 84 kg

DRUGS (8)
  1. HUMIRA [Suspect]
     Indication: ANKYLOSING SPONDYLITIS
     Route: 058
     Dates: start: 20110117, end: 20130327
  2. HUMIRA [Suspect]
     Route: 058
     Dates: start: 20130515
  3. ASAFLOW [Concomitant]
     Indication: CARDIOVASCULAR EVENT PROPHYLAXIS
     Dates: start: 20040323
  4. NOBITEN [Concomitant]
     Indication: HYPERTENSION
     Dates: start: 20051106
  5. PANTOMED [Concomitant]
     Indication: GASTROOESOPHAGEAL REFLUX DISEASE
     Dates: start: 20130218
  6. CO-APROVEL [Concomitant]
     Indication: HYPERTENSION
     Dates: start: 20051106
  7. FELDENE [Concomitant]
     Indication: NEURITIS
     Dates: start: 20130218
  8. LIPANTHYLNANO [Concomitant]
     Indication: HYPERTRIGLYCERIDAEMIA
     Dates: start: 20051106

REACTIONS (3)
  - Sciatica [Recovered/Resolved]
  - Spinal column stenosis [Recovered/Resolved]
  - Spinal claudication [Recovered/Resolved]
